FAERS Safety Report 8936246 (Version 2)
Quarter: 2013Q1

REPORT INFORMATION
  Report Type: Spontaneous
  Country: US (occurrence: US)
  Receive Date: 20121130
  Receipt Date: 20130107
  Transmission Date: 20140127
  Serious: No
  Sender: FDA-Public Use
  Company Number: US-PFIZER INC-2012298906

PATIENT
  Sex: Female

DRUGS (2)
  1. LIPITOR [Suspect]
     Dosage: 80 MG, UNK
  2. CELEBREX [Suspect]
     Dosage: 200 MG, UNK

REACTIONS (1)
  - No adverse event [Unknown]
